FAERS Safety Report 8192583-3 (Version None)
Quarter: 2012Q1

REPORT INFORMATION
  Report Type: 
  Country: None (occurrence: None)
  Receive Date: 20120221
  Receipt Date: 20111128
  Transmission Date: 20120608
  Serious: No
  Sender: FDA-Public Use
  Company Number: 1000026440

PATIENT
  Age: 56 Year
  Sex: Female

DRUGS (4)
  1. SOMA (CARISOPRODOL) (CARISOPRODOL) [Concomitant]
  2. VIDODIN (HYDROCODONE, ACETAMINOPHEN) (HYDROCODONE, ACETAMINOPHEN) [Concomitant]
  3. VIIBRYD [Suspect]
     Indication: DEPRESSION
     Dosage: 10 MG (10 MG, 1 IN 1 D), ORAL; 20 MG (20 MG, 1 IN 1 D), ORAL
     Route: 048
     Dates: start: 20111101
  4. VIIBRYD [Suspect]
     Indication: DEPRESSION
     Dosage: 10 MG (10 MG, 1 IN 1 D), ORAL; 20 MG (20 MG, 1 IN 1 D), ORAL
     Route: 048
     Dates: start: 20111101, end: 20111101

REACTIONS (2)
  - INSOMNIA [None]
  - TREMOR [None]
